FAERS Safety Report 8248408-0 (Version None)
Quarter: 2012Q1

REPORT INFORMATION
  Report Type: 
  Country: None (occurrence: None)
  Receive Date: 20120330
  Receipt Date: 20120320
  Transmission Date: 20120608
  Serious: Yes (Hospitalization)
  Sender: FDA-Public Use
  Company Number: IE-FRI-1000029419

PATIENT
  Age: 80 Year
  Sex: Female

DRUGS (2)
  1. LEXAPRO [Suspect]
     Indication: DEPRESSION
  2. ANTIPSYCHOTIC DRUGS [Concomitant]

REACTIONS (2)
  - CONDITION AGGRAVATED [None]
  - BLOOD SODIUM DECREASED [None]
